FAERS Safety Report 16069285 (Version 3)
Quarter: 2019Q2

REPORT INFORMATION
  Report Type: Spontaneous
  Country: RU (occurrence: RU)
  Receive Date: 20190313
  Receipt Date: 20190411
  Transmission Date: 20190711
  Serious: Yes (Hospitalization, Other)
  Sender: FDA-Public Use
  Company Number: PHHY2019RU056028

PATIENT
  Sex: Female

DRUGS (2)
  1. COSENTYX [Suspect]
     Active Substance: SECUKINUMAB
     Indication: ANKYLOSING SPONDYLITIS
     Dosage: 150 MG, UNK (SUPPORTING DOSE)
     Route: 058
     Dates: start: 20180927
  2. COSENTYX [Suspect]
     Active Substance: SECUKINUMAB
     Dosage: LAST INJECTION
     Route: 058
     Dates: start: 20190221

REACTIONS (11)
  - Vision blurred [Unknown]
  - Visual acuity tests abnormal [Unknown]
  - Swelling of eyelid [Unknown]
  - Diplopia [Unknown]
  - Lacrimation increased [Unknown]
  - Uveitis [Unknown]
  - Ocular hyperaemia [Unknown]
  - Headache [Unknown]
  - Eye pain [Unknown]
  - Sensation of foreign body [Unknown]
  - Photophobia [Unknown]

NARRATIVE: CASE EVENT DATE: 20190208
